FAERS Safety Report 25905563 (Version 1)
Quarter: 2025Q4

REPORT INFORMATION
  Report Type: Spontaneous
  Country: EU (occurrence: EU)
  Receive Date: 20251010
  Receipt Date: 20251010
  Transmission Date: 20260117
  Serious: Yes (Hospitalization)
  Sender: MYLAN
  Company Number: EU-MYLANLABS-2025M1085367

PATIENT
  Age: 71 Year
  Sex: Female

DRUGS (12)
  1. ARIXTRA [Suspect]
     Active Substance: FONDAPARINUX SODIUM
     Indication: Skin test
     Dosage: UNK, EPICUTANEOUS
  2. CERTOPARIN SODIUM [Suspect]
     Active Substance: CERTOPARIN SODIUM
     Indication: Prophylaxis
     Dosage: UNK, QD
     Dates: start: 201406
  3. CERTOPARIN SODIUM [Suspect]
     Active Substance: CERTOPARIN SODIUM
     Indication: Skin test
     Dosage: UNK, INTRACUTANEOUS
  4. HEPARIN [Suspect]
     Active Substance: HEPARIN SODIUM
     Indication: Skin test
     Dosage: UNK, INTRACUTANEOUS
  5. FONDAPARINUX [Suspect]
     Active Substance: FONDAPARINUX
     Indication: Anticoagulant therapy
     Dosage: UNK
  6. ENOXAPARIN SODIUM [Suspect]
     Active Substance: ENOXAPARIN SODIUM
     Indication: Product used for unknown indication
     Dosage: 0.2 MILLILITER, QD
  7. HEPARIN SODIUM [Suspect]
     Active Substance: HEPARIN SODIUM
     Indication: Skin test
     Dosage: UNK, INTRACUTANEOUS
  8. NADROPARIN CALCIUM [Suspect]
     Active Substance: NADROPARIN CALCIUM
     Indication: Skin test
     Dosage: UNK, INTRACUTANEOUS
  9. ENOXAPARIN SODIUM [Suspect]
     Active Substance: ENOXAPARIN SODIUM
     Indication: Skin test
     Dosage: UNK, INTRACUTANEOUS
  10. DALTEPARIN SODIUM [Suspect]
     Active Substance: DALTEPARIN SODIUM
     Indication: Skin test
     Dosage: UNK, INTRACUTANEOUS
  11. DALTEPARIN SODIUM [Suspect]
     Active Substance: DALTEPARIN SODIUM
     Indication: Skin test
     Dosage: UNK, EPICUTANEOUS
  12. PENTOSAN POLYSULFATE SODIUM [Suspect]
     Active Substance: PENTOSAN POLYSULFATE SODIUM
     Indication: Drug provocation test
     Dosage: 0.5 MILLIGRAM

REACTIONS (6)
  - Hypersensitivity [Unknown]
  - Injection site erythema [Unknown]
  - Bladder disorder [Unknown]
  - Skin irritation [Unknown]
  - Erythema [Unknown]
  - Blister [Unknown]

NARRATIVE: CASE EVENT DATE: 20140601
